FAERS Safety Report 7791411-5 (Version None)
Quarter: 2011Q4

REPORT INFORMATION
  Report Type: 
  Country: None (occurrence: None)
  Receive Date: 20111003
  Receipt Date: 20110920
  Transmission Date: 20120403
  Serious: Yes (Hospitalization)
  Sender: FDA-Public Use
  Company Number: US-JNJFOC-20110908782

PATIENT
  Age: 25 Year
  Sex: Female

DRUGS (4)
  1. IV STEROIDS [Concomitant]
     Route: 065
  2. TPN [Concomitant]
     Route: 065
  3. ALL OTHER THERAPEUTICS [Concomitant]
     Route: 065
  4. REMICADE [Suspect]
     Indication: COLITIS ULCERATIVE
     Route: 042
     Dates: start: 20110301, end: 20110301

REACTIONS (4)
  - PLEURAL EFFUSION [None]
  - COLITIS ULCERATIVE [None]
  - BRADYCARDIA [None]
  - COLECTOMY [None]
